FAERS Safety Report 7484974-0 (Version None)
Quarter: 2011Q2

REPORT INFORMATION
  Report Type: 
  Country: None (occurrence: None)
  Receive Date: 20110517
  Receipt Date: 20110513
  Transmission Date: 20111010
  Serious: Yes (Other)
  Sender: FDA-Public Use
  Company Number: PHHY2010BR80880

PATIENT
  Sex: Female

DRUGS (2)
  1. DIOVAN HCT [Suspect]
  2. DIOVAN [Suspect]
     Dosage: 320 MG, UNK

REACTIONS (5)
  - WEIGHT DECREASED [None]
  - SOMNOLENCE [None]
  - BLOOD PRESSURE DECREASED [None]
  - ASTHENIA [None]
  - FATIGUE [None]
